FAERS Safety Report 6574950-4 (Version None)
Quarter: 2010Q1

REPORT INFORMATION
  Report Type: 
  Country: None (occurrence: None)
  Receive Date: 20100209
  Receipt Date: 20100203
  Transmission Date: 20100710
  Serious: Yes (Hospitalization)
  Sender: FDA-Public Use
  Company Number: PHHY2010CN00712

PATIENT

DRUGS (1)
  1. TRILEPTAL [Suspect]
     Dosage: UNK

REACTIONS (2)
  - RENAL FAILURE [None]
  - SYSTEMIC LUPUS ERYTHEMATOSUS [None]
